FAERS Safety Report 8431555-8 (Version None)
Quarter: 2012Q2

REPORT INFORMATION
  Report Type: 
  Country: None (occurrence: None)
  Receive Date: 20120607
  Receipt Date: 20120607
  Transmission Date: 20120825
  Serious: Yes (Hospitalization)
  Sender: FDA-Public Use
  Company Number: None

PATIENT
  Sex: Male
  Weight: 92.7 kg

DRUGS (5)
  1. EVEROLIMUS 2.5 MG NOVARTIS [Suspect]
     Indication: ADENOCARCINOMA
     Dosage: 2.5 MG
     Dates: start: 20120516
  2. EVEROLIMUS 2.5 MG NOVARTIS [Suspect]
     Indication: GASTROOESOPHAGEAL CANCER
     Dosage: 2.5 MG
     Dates: start: 20120516
  3. OXALIPLATIN [Concomitant]
  4. LEUCOVORIN CALCIUM [Concomitant]
  5. FLUOROURACIL [Concomitant]

REACTIONS (6)
  - DEVICE RELATED INFECTION [None]
  - COUGH [None]
  - RESPIRATORY TRACT INFECTION [None]
  - PYREXIA [None]
  - CHILLS [None]
  - INFECTION [None]
